FAERS Safety Report 13699335 (Version 1)
Quarter: 2017Q2

REPORT INFORMATION
  Report Type: Spontaneous
  Country: IT (occurrence: IT)
  Receive Date: 20170628
  Receipt Date: 20170628
  Transmission Date: 20170830
  Serious: Yes (Hospitalization)
  Sender: FDA-Public Use
  Company Number: IT-TAKEDA-2017TUS013947

PATIENT
  Age: 43 Year
  Sex: Male
  Weight: 68 kg

DRUGS (5)
  1. ZETIA [Concomitant]
     Active Substance: EZETIMIBE
     Indication: BLOOD CHOLESTEROL
     Dosage: UNK
     Route: 065
  2. EN [Concomitant]
     Active Substance: DELORAZEPAM
     Indication: PRODUCT USED FOR UNKNOWN INDICATION
     Dosage: UNK
     Route: 065
  3. BRINTELLIX [Suspect]
     Active Substance: VORTIOXETINE HYDROBROMIDE
     Indication: MAJOR DEPRESSION
     Dosage: UNK
     Route: 065
     Dates: start: 201612
  4. BRINTELLIX [Suspect]
     Active Substance: VORTIOXETINE HYDROBROMIDE
     Dosage: 2 GTT, QD
     Route: 048
     Dates: start: 20170608, end: 20170609
  5. BRINTELLIX [Suspect]
     Active Substance: VORTIOXETINE HYDROBROMIDE
     Dosage: 3 GTT, QD
     Route: 048
     Dates: start: 20170610, end: 20170610

REACTIONS (4)
  - Confusional state [Recovered/Resolved]
  - Speech disorder [Unknown]
  - Asthenia [Recovered/Resolved]
  - Asthenia [Recovered/Resolved]

NARRATIVE: CASE EVENT DATE: 201612
